FAERS Safety Report 19740772 (Version 2)
Quarter: 2021Q3

REPORT INFORMATION
  Report Type: Spontaneous
  Country: IN (occurrence: IN)
  Receive Date: 20210824
  Receipt Date: 20210825
  Transmission Date: 20211014
  Serious: Yes (Hospitalization, Congenital Anomaly, Other)
  Sender: FDA-Public Use
  Company Number: IN-ALLERGAN-2129369US

PATIENT
  Sex: Male

DRUGS (5)
  1. IRON AND CALCIUM SUPPLEMENTS [MINERALS] [Suspect]
     Active Substance: MINERALS
     Indication: EXPOSURE DURING PREGNANCY
     Route: 064
  2. FLUOXETINE HCL UNK [Suspect]
     Active Substance: FLUOXETINE HYDROCHLORIDE
     Dosage: 40 MG
  3. PROMETHAZINE [Suspect]
     Active Substance: PROMETHAZINE HYDROCHLORIDE
     Indication: EXPOSURE DURING PREGNANCY
     Dosage: 50 MG, QHS
     Route: 064
  4. FLUOXETINE HCL UNK [Suspect]
     Active Substance: FLUOXETINE HYDROCHLORIDE
     Indication: EXPOSURE DURING PREGNANCY
     Dosage: 60 MG, QD
     Route: 064
  5. FOLIC ACID. [Suspect]
     Active Substance: FOLIC ACID
     Indication: EXPOSURE DURING PREGNANCY
     Dosage: UNK
     Route: 064

REACTIONS (2)
  - Pyloric stenosis [Recovering/Resolving]
  - Pregnancy [Unknown]
